FAERS Safety Report 6258329-0 (Version None)
Quarter: 2009Q3

REPORT INFORMATION
  Report Type: 
  Country: None (occurrence: None)
  Receive Date: 20090701
  Receipt Date: 20080506
  Transmission Date: 20100115
  Serious: Yes (Hospitalization)
  Sender: FDA-Public Use
  Company Number: 562610

PATIENT
  Age: 57 Year
  Sex: Female

DRUGS (22)
  1. KLONOPIN [Suspect]
     Indication: DRUG USE FOR UNKNOWN INDICATION
     Dosage: 4.5 MG
     Dates: start: 20080421
  2. CARBATROL [Suspect]
     Indication: DRUG USE FOR UNKNOWN INDICATION
     Dosage: 700 MG
     Dates: start: 20080421
  3. TEGRETOL [Suspect]
     Indication: DRUG USE FOR UNKNOWN INDICATION
     Dosage: 350 MG
     Dates: start: 20080421
  4. LAMICTAL [Suspect]
     Indication: DRUG USE FOR UNKNOWN INDICATION
     Dosage: 350 MG
     Dates: start: 20080421
  5. ZOLOFT [Suspect]
     Indication: DRUG USE FOR UNKNOWN INDICATION
     Dosage: 100 MG
     Dates: start: 20080421
  6. ZANTAC [Suspect]
     Indication: DRUG USE FOR UNKNOWN INDICATION
     Dosage: 150 MG
     Dates: start: 20080421
  7. COLACE (DOCUSATE SODIUM) [Suspect]
     Indication: DRUG USE FOR UNKNOWN INDICATION
     Dosage: 100 MG
     Dates: start: 20080421
  8. MELATONIN (MELATONIN) [Suspect]
     Indication: DRUG USE FOR UNKNOWN INDICATION
     Dosage: 175 MG
     Dates: start: 20080421
  9. DRUG UNKNOWN, BLINDED STUDY UNK (BLINDED INVESTIGATIONAL DRUG) [Concomitant]
  10. AMITRIPTYLINE HYDROCHLORIDE [Concomitant]
  11. IMITREX (SUMATRIPTAN SUCCINATE) [Concomitant]
  12. TETRACYCLINE [Concomitant]
  13. PROPANOLOL (PROPANOLOL) UNK [Concomitant]
  14. TYLENOL #3 (*CAFFEINE/CODEINE PHOSPHATE/PARACETAMOL) UNK [Concomitant]
  15. GLUCOSAMINE SULFATE CHONDROITIN (CHONDROITIN SULFATE/GLUCOSAMINE) [Concomitant]
  16. MULTIVITAMIN NOS (MULTIVITAMIN NOS) UNK [Concomitant]
  17. VITAMIN E (ALPHA-TOCOPHEROL) UNK [Concomitant]
  18. PEPCID (FAMOTIDINE) UNK [Concomitant]
  19. ADVIL (IBUPROFEN) UNK [Concomitant]
  20. LIPITOR (ATORVASTATIN CALCIUM) UNK [Concomitant]
  21. FLUOXETINE [Concomitant]
  22. . [Concomitant]

REACTIONS (6)
  - ADVERSE EVENT [None]
  - COMA [None]
  - CONFUSIONAL STATE [None]
  - INCONTINENCE [None]
  - LETHARGY [None]
  - WRONG DRUG ADMINISTERED [None]
